FAERS Safety Report 23295984 (Version 1)
Quarter: 2023Q4

REPORT INFORMATION
  Report Type: Spontaneous
  Country: FR (occurrence: FR)
  Receive Date: 20231214
  Receipt Date: 20231214
  Transmission Date: 20240110
  Serious: Yes (Hospitalization)
  Sender: FDA-Public Use
  Company Number: FR-SUN PHARMACEUTICAL INDUSTRIES LTD-2023RR-422830

PATIENT
  Age: 31 Year
  Sex: Female
  Weight: 54.3 kg

DRUGS (6)
  1. IBUPROFEN [Suspect]
     Active Substance: IBUPROFEN
     Indication: Bronchitis
     Dosage: 1 DOSAGE FORM
     Route: 048
     Dates: start: 20221015, end: 20221020
  2. OMEPRAZOLE [Concomitant]
     Active Substance: OMEPRAZOLE
     Indication: Gastrooesophageal reflux prophylaxis
     Dosage: 1 DOSAGE FORM
     Route: 048
     Dates: start: 20221010
  3. ACETAMINOPHEN [Concomitant]
     Active Substance: ACETAMINOPHEN
     Indication: Bronchitis
     Dosage: 1 DOSAGE FORM
     Route: 048
     Dates: start: 20221010
  4. EBASTINE [Concomitant]
     Active Substance: EBASTINE
     Indication: Bronchitis
     Dosage: 1 DOSAGE FORM
     Route: 048
     Dates: start: 20221010
  5. ZITHROMAX [Concomitant]
     Active Substance: AZITHROMYCIN DIHYDRATE
     Indication: Bronchitis
     Dosage: 1 DOSAGE FORM
     Route: 048
     Dates: start: 20221010
  6. PRISTINAMYCIN [Concomitant]
     Active Substance: PRISTINAMYCIN
     Indication: Bronchitis
     Dosage: 1 DOSAGE FORM
     Route: 048
     Dates: start: 20221015

REACTIONS (1)
  - Meningitis pneumococcal [Recovered/Resolved]

NARRATIVE: CASE EVENT DATE: 20221020
